FAERS Safety Report 22978472 (Version 2)
Quarter: 2023Q4

REPORT INFORMATION
  Report Type: Spontaneous
  Country: GR (occurrence: GR)
  Receive Date: 20230925
  Receipt Date: 20231006
  Transmission Date: 20240110
  Serious: Yes (Hospitalization, Other)
  Sender: FDA-Public Use
  Company Number: GR-Zentiva-2023-ZT-019318

PATIENT
  Age: 57 Year
  Sex: Female

DRUGS (4)
  1. PIOGLITAZONE [Suspect]
     Active Substance: PIOGLITAZONE
     Indication: Type 2 diabetes mellitus
     Dosage: UNK
     Route: 065
  2. DULAGLUTIDE [Suspect]
     Active Substance: DULAGLUTIDE
     Indication: Type 2 diabetes mellitus
     Dosage: UNK
     Route: 065
  3. METFORMIN [Concomitant]
     Active Substance: METFORMIN HYDROCHLORIDE
     Indication: Type 2 diabetes mellitus
     Dosage: UNK
     Route: 065
  4. LEVOTHYROXINE [Concomitant]
     Active Substance: LEVOTHYROXINE
     Indication: Hypothyroidism
     Dosage: UNK
     Route: 065

REACTIONS (7)
  - Chronic hepatitis [Unknown]
  - Portal fibrosis [Unknown]
  - Portal hypertension [Unknown]
  - Autoimmune hepatitis [Recovering/Resolving]
  - Hypertransaminasaemia [Recovered/Resolved]
  - Hepatosplenomegaly [Unknown]
  - Hepatic steatosis [Unknown]
